FAERS Safety Report 6284882-7 (Version None)
Quarter: 2009Q3

REPORT INFORMATION
  Report Type: 
  Country: None (occurrence: None)
  Receive Date: 20090727
  Receipt Date: 20090722
  Transmission Date: 20100115
  Serious: Yes (Hospitalization)
  Sender: FDA-Public Use
  Company Number: B0585062A

PATIENT
  Sex: Female

DRUGS (14)
  1. VENTOLIN [Suspect]
     Indication: ASTHMA
     Route: 055
     Dates: end: 20081028
  2. SERETIDE [Suspect]
     Indication: ASTHMA
     Dosage: 2PUFF PER DAY
     Route: 055
  3. SOLU-MEDROL [Suspect]
     Indication: ASTHMA
     Route: 042
     Dates: start: 20081021, end: 20081023
  4. BRICANYL [Suspect]
     Indication: ASTHMA
     Dosage: 3UNIT SEE DOSAGE TEXT
     Dates: start: 20081021, end: 20081021
  5. ATROVENT [Suspect]
     Indication: ASTHMA
     Dosage: 3UNIT SEE DOSAGE TEXT
     Route: 055
     Dates: start: 20081021, end: 20081021
  6. XYZAL [Concomitant]
     Indication: ASTHMA
     Dosage: 5MG PER DAY
     Route: 048
     Dates: end: 20081023
  7. APIDRA [Concomitant]
     Dosage: 30IU PER DAY
     Route: 058
  8. TAHOR [Concomitant]
     Dosage: 10MG PER DAY
     Route: 048
  9. DIAMICRON [Concomitant]
     Dosage: 30MG THREE TIMES PER DAY
     Route: 048
  10. LANTUS [Concomitant]
     Dosage: 34IU PER DAY
     Route: 058
  11. TRIATEC [Concomitant]
     Indication: HYPERTENSIVE HEART DISEASE
     Dosage: 5MG PER DAY
     Route: 048
  12. ISOPTIN SR [Concomitant]
     Indication: HYPERTENSIVE HEART DISEASE
     Dosage: 240MG PER DAY
     Route: 048
  13. ADANCOR [Concomitant]
     Indication: DRUG USE FOR UNKNOWN INDICATION
     Dosage: 10MG PER DAY
     Route: 048
  14. KARDEGIC [Concomitant]
     Dosage: 75MG PER DAY
     Route: 048

REACTIONS (2)
  - BLOOD GLUCOSE INCREASED [None]
  - DIABETES MELLITUS [None]
